FAERS Safety Report 8929271 (Version 1)
Quarter: 2012Q4

REPORT INFORMATION
  Report Type: Spontaneous
  Country: US (occurrence: None)
  Receive Date: 20121126
  Receipt Date: 20121126
  Transmission Date: 20130627
  Serious: Yes (Death)
  Sender: FDA-Public Use
  Company Number: None

PATIENT
  Age: 66 Year
  Sex: Female
  Weight: 81.65 kg

DRUGS (6)
  1. TREANDA [Suspect]
     Indication: CLL
     Dosage: 5 times
     Dates: start: 20110919
  2. TREANDA [Suspect]
     Indication: CLL
     Dosage: 5 times
     Dates: start: 20110920
  3. TREANDA [Suspect]
     Indication: CLL
     Dosage: 5 times
     Dates: start: 20111003
  4. TREANDA [Suspect]
     Indication: CLL
     Dosage: 5 times
     Dates: start: 20111114
  5. TREANDA [Suspect]
     Indication: CLL
     Dosage: 5 times
     Dates: start: 20111115
  6. TREANDA [Suspect]
     Indication: CLL
     Dosage: 5 times
     Dates: start: 20111115

REACTIONS (4)
  - Rash [None]
  - Staphylococcal infection [None]
  - Stevens-Johnson syndrome [None]
  - Toxic epidermal necrolysis [None]
